FAERS Safety Report 18557523 (Version 1)
Quarter: 2020Q4

REPORT INFORMATION
  Report Type: Spontaneous
  Country: US (occurrence: US)
  Receive Date: 20201130
  Receipt Date: 20201130
  Transmission Date: 20210114
  Serious: No
  Sender: FDA-Public Use
  Company Number: US-CELGENEUS-USA-20201106465

PATIENT
  Sex: Female

DRUGS (3)
  1. REVLIMID [Suspect]
     Active Substance: LENALIDOMIDE
     Indication: B-CELL LYMPHOMA
  2. REVLIMID [Suspect]
     Active Substance: LENALIDOMIDE
     Indication: OFF LABEL USE
  3. REVLIMID [Suspect]
     Active Substance: LENALIDOMIDE
     Indication: URINE ANALYSIS ABNORMAL
     Dosage: 20 MILLIGRAM
     Route: 048
     Dates: start: 202010

REACTIONS (3)
  - Respiratory arrest [Unknown]
  - Depressed mood [Unknown]
  - Gait inability [Unknown]

NARRATIVE: CASE EVENT DATE: 2020
